FAERS Safety Report 4699264-9 (Version None)
Quarter: 2005Q2

REPORT INFORMATION
  Report Type: 
  Country: None (occurrence: None)
  Receive Date: 20050624
  Receipt Date: 20050318
  Transmission Date: 20051028
  Serious: Yes (Hospitalization, Disabling)
  Sender: FDA-Public Use
  Company Number: US-MERCK-0503USA03842

PATIENT
  Age: 36 Year
  Sex: Male
  Weight: 77 kg

DRUGS (7)
  1. VIOXX [Suspect]
     Indication: SHOULDER PAIN
     Route: 048
     Dates: end: 20020201
  2. VIOXX [Suspect]
     Route: 048
     Dates: end: 20020201
  3. XANAX [Concomitant]
     Route: 065
  4. PROZAC [Concomitant]
     Route: 065
  5. LIPITOR [Concomitant]
     Route: 065
  6. TRICOR [Concomitant]
     Route: 065
  7. PLAVIX [Concomitant]
     Route: 065

REACTIONS (5)
  - CONTUSION [None]
  - DIABETES MELLITUS [None]
  - HAEMATOCHEZIA [None]
  - MYOCARDIAL INFARCTION [None]
  - UPPER LIMB FRACTURE [None]
